FAERS Safety Report 5047980-1 (Version None)
Quarter: 2006Q3

REPORT INFORMATION
  Report Type: 
  Country: None (occurrence: None)
  Receive Date: 20060710
  Receipt Date: 20060710
  Transmission Date: 20061208
  Serious: Yes (Disabling)
  Sender: FDA-Public Use
  Company Number: None

PATIENT
  Age: 86 Year
  Sex: Female
  Weight: 58.9676 kg

DRUGS (4)
  1. FOSAMAX [Suspect]
     Indication: OSTEOPOROSIS
     Dosage: ONCE WEEKLY ORALLY
     Route: 048
     Dates: start: 20040601, end: 20050601
  2. SYNTHROID [Concomitant]
  3. CARDIZEM [Concomitant]
  4. FESO4 [Concomitant]

REACTIONS (1)
  - OSTEONECROSIS [None]
